FAERS Safety Report 8320442-1 (Version None)
Quarter: 2012Q2

REPORT INFORMATION
  Report Type: 
  Country: None (occurrence: None)
  Receive Date: 20120426
  Receipt Date: 20120426
  Transmission Date: 20120825
  Serious: No
  Sender: FDA-Public Use
  Company Number: None

PATIENT
  Age: 54 Year
  Sex: Female

DRUGS (2)
  1. OXYBUTYNIN [Suspect]
     Indication: HYPERTONIC BLADDER
     Dosage: 1 TAB 3X A DAY
     Dates: start: 20120323
  2. OXYBUTYNIN [Suspect]
     Indication: HYPERTONIC BLADDER
     Dosage: 1 TAB 3X A DAY
     Dates: start: 20120401

REACTIONS (4)
  - DYSURIA [None]
  - DYSPHAGIA [None]
  - BACK PAIN [None]
  - DRY MOUTH [None]
